FAERS Safety Report 5657740-6 (Version None)
Quarter: 2008Q1

REPORT INFORMATION
  Report Type: 
  Country: None (occurrence: None)
  Receive Date: 20080310
  Receipt Date: 20080303
  Transmission Date: 20080703
  Serious: Yes (Death)
  Sender: FDA-Public Use
  Company Number: US-BAXTER-2008BH001848

PATIENT
  Age: 53 Year
  Sex: Female

DRUGS (3)
  1. HEPARIN SODIUM [Suspect]
     Indication: CARDIAC OPERATION
     Dosage: DOSE UNIT:UNKNOWN
     Route: 065
     Dates: start: 20040801, end: 20040801
  2. BLOOD THINNER [Concomitant]
     Dosage: DOSE UNIT:UNKNOWN
     Route: 048
     Dates: end: 20040901
  3. SEIZURE MED [Concomitant]
     Indication: CONVULSION
     Dosage: DOSE UNIT:UNKNOWN
     Route: 048
     Dates: end: 20040901

REACTIONS (5)
  - AGGRESSION [None]
  - ARRHYTHMIA [None]
  - CONFUSIONAL STATE [None]
  - MULTI-ORGAN FAILURE [None]
  - THROMBOCYTOPENIA [None]
